FAERS Safety Report 7825065-6 (Version None)
Quarter: 2011Q4

REPORT INFORMATION
  Report Type: 
  Country: None (occurrence: None)
  Receive Date: 20111019
  Receipt Date: 20110519
  Transmission Date: 20120403
  Serious: No
  Sender: FDA-Public Use
  Company Number: US-BRISTOL-MYERS SQUIBB COMPANY-15761067

PATIENT
  Sex: Male

DRUGS (1)
  1. AVALIDE [Suspect]
     Dosage: 1DF = AVALIDE 300/25

REACTIONS (6)
  - PROTEINURIA [None]
  - URINE ANALYSIS ABNORMAL [None]
  - RENAL IMPAIRMENT [None]
  - PROSTATIC DISORDER [None]
  - HYPERTENSION [None]
  - EYE SWELLING [None]
